FAERS Safety Report 7803253-2 (Version None)
Quarter: 2011Q4

REPORT INFORMATION
  Report Type: 
  Country: None (occurrence: None)
  Receive Date: 20111007
  Receipt Date: 20110926
  Transmission Date: 20120403
  Serious: Yes (Life-Threatening, Hospitalization)
  Sender: FDA-Public Use
  Company Number: GB-MUTUAL PHARMACEUTICAL COMPANY, INC.-SFTM20110007

PATIENT
  Age: 38 Year
  Sex: Male

DRUGS (7)
  1. COTRIM [Suspect]
     Indication: PROPHYLAXIS
     Route: 065
  2. ATOVAQUONE [Concomitant]
     Indication: PROPHYLAXIS
     Route: 065
  3. COTRIM [Suspect]
     Route: 065
  4. COTRIM [Suspect]
     Indication: PNEUMOCYSTIS JIROVECI PNEUMONIA
     Route: 048
  5. CLINDAMYCIN [Concomitant]
     Indication: PNEUMOCYSTIS JIROVECI PNEUMONIA
     Route: 065
  6. PRIMAQUINE [Concomitant]
     Indication: PNEUMOCYSTIS JIROVECI PNEUMONIA
     Route: 065
  7. COTRIM [Suspect]
     Indication: BACTERIAL SEPSIS
     Route: 065

REACTIONS (18)
  - ADVERSE DRUG REACTION [None]
  - LOSS OF CONSCIOUSNESS [None]
  - CYANOSIS [None]
  - C-REACTIVE PROTEIN INCREASED [None]
  - CONJUNCTIVAL HYPERAEMIA [None]
  - HYPOTENSION [None]
  - RALES [None]
  - NEUTROPHIL COUNT INCREASED [None]
  - LUNG INFILTRATION [None]
  - PYREXIA [None]
  - ALANINE AMINOTRANSFERASE INCREASED [None]
  - RASH ERYTHEMATOUS [None]
  - BLOOD ALKALINE PHOSPHATASE INCREASED [None]
  - VENOUS PRESSURE JUGULAR DECREASED [None]
  - VOMITING [None]
  - TACHYCARDIA [None]
  - PO2 DECREASED [None]
  - NAUSEA [None]
